FAERS Safety Report 17363938 (Version 2)
Quarter: 2020Q1

REPORT INFORMATION
  Report Type: Report from Study
  Country: None (occurrence: US)
  Receive Date: 20200203
  Receipt Date: 20200311
  Transmission Date: 20200409
  Serious: Yes (Other)
  Sender: FDA-Public Use
  Company Number: US-ABBVIE-20K-163-3248084-00

PATIENT
  Age: 49 Year
  Sex: Female
  Weight: 131.66 kg

DRUGS (1)
  1. HUMIRA [Suspect]
     Active Substance: ADALIMUMAB
     Indication: HIDRADENITIS
     Dosage: CITRATE FREE
     Route: 058
     Dates: start: 201812

REACTIONS (4)
  - Intestinal perforation [Not Recovered/Not Resolved]
  - Gastritis bacterial [Not Recovered/Not Resolved]
  - Fungal oesophagitis [Recovered/Resolved]
  - Gastric disorder [Unknown]

NARRATIVE: CASE EVENT DATE: 201912
